FAERS Safety Report 9851956 (Version 1)
Quarter: 2014Q1

REPORT INFORMATION
  Report Type: Spontaneous
  Country: US (occurrence: None)
  Receive Date: 20140127
  Receipt Date: 20140127
  Transmission Date: 20141002
  Serious: Yes (Hospitalization)
  Sender: FDA-Public Use
  Company Number: SYM-2014-15142

PATIENT
  Sex: Female

DRUGS (2)
  1. XENAZINE [Suspect]
     Indication: DYSTONIA
     Dosage: 25MG, 3 IN 1 D, ORAL
     Route: 048
  2. AMANTADINE [Suspect]
     Indication: PRODUCT USED FOR UNKNOWN INDICATION

REACTIONS (7)
  - Balance disorder [None]
  - Fall [None]
  - Asthenia [None]
  - Disturbance in attention [None]
  - Confusional state [None]
  - Hallucination [None]
  - Delirium [None]
